FAERS Safety Report 7334807-8 (Version None)
Quarter: 2011Q1

REPORT INFORMATION
  Report Type: 
  Country: None (occurrence: None)
  Receive Date: 20110307
  Receipt Date: 20110303
  Transmission Date: 20110831
  Serious: Yes (Death)
  Sender: FDA-Public Use
  Company Number: PHHY2011JP10573

PATIENT
  Sex: Male

DRUGS (3)
  1. MAGMITT [Concomitant]
     Dosage: 660 MG, UNK
     Route: 048
     Dates: start: 20100604
  2. VALSARTAN, AMLODIPINE [Suspect]
     Indication: HYPERTENSION
     Dosage: 1 DF, DAILY
     Route: 048
     Dates: start: 20100623, end: 20101224
  3. FAMOTIDINE [Concomitant]
     Dosage: 20 MG, UNK
     Route: 048
     Dates: start: 20100604

REACTIONS (3)
  - PNEUMONIA [None]
  - LUNG NEOPLASM MALIGNANT [None]
  - CONDITION AGGRAVATED [None]
